FAERS Safety Report 5733862-6 (Version None)
Quarter: 2008Q2

REPORT INFORMATION
  Report Type: 
  Country: None (occurrence: None)
  Receive Date: 20080509
  Receipt Date: 20080501
  Transmission Date: 20081010
  Serious: Yes (Hospitalization)
  Sender: FDA-Public Use
  Company Number: US-ELI_LILLY_AND_COMPANY-US200805000420

PATIENT
  Age: 54 Year
  Sex: Male

DRUGS (1)
  1. HUMULIN R [Suspect]
     Dates: start: 20070201

REACTIONS (5)
  - BLOOD GLUCOSE DECREASED [None]
  - BLOOD GLUCOSE INCREASED [None]
  - CARDIAC ENZYMES INCREASED [None]
  - MYOCARDIAL INFARCTION [None]
  - SOMNOLENCE [None]
